FAERS Safety Report 23435920 (Version 1)
Quarter: 2024Q1

REPORT INFORMATION
  Report Type: Spontaneous
  Country: US (occurrence: US)
  Receive Date: 20240124
  Receipt Date: 20240124
  Transmission Date: 20240410
  Serious: Yes (Hospitalization)
  Sender: FDA-Public Use
  Company Number: US-AMERICAN REGENT INC-2024000196

PATIENT
  Age: 74 Year
  Sex: Female

DRUGS (8)
  1. LIDOCAINE HYDROCHLORIDE [Suspect]
     Active Substance: LIDOCAINE HYDROCHLORIDE
     Indication: Lumbar radiculopathy
     Dosage: 2 MILLILITER
     Route: 008
  2. LIDOCAINE HYDROCHLORIDE [Suspect]
     Active Substance: LIDOCAINE HYDROCHLORIDE
     Dosage: 2 MILLILITER (15 MONTHS AFTER PREVIOUS INJECTION)
     Route: 008
  3. IOHEXOL [Suspect]
     Active Substance: IOHEXOL
     Indication: Epidural catheter placement
     Dosage: 1 MILLILITER
     Route: 008
  4. IOHEXOL [Suspect]
     Active Substance: IOHEXOL
     Dosage: 1 MILLILITER (15 MONTHS AFTER PREVIOUS INJECTION)
     Route: 008
  5. DEPO-MEDROL [Suspect]
     Active Substance: METHYLPREDNISOLONE ACETATE
     Indication: Lumbar radiculopathy
     Dosage: 80 MILLIGRAM (2 ML OF 40 MG/ML)
     Route: 008
  6. DEPO-MEDROL [Suspect]
     Active Substance: METHYLPREDNISOLONE ACETATE
     Dosage: 80 MILLIGRAM (2 ML OF 40 MG/ML) (15 MONTHS AFTER PREVIOUS INJECTION)
     Route: 008
  7. SODIUM CHLORIDE [Concomitant]
     Active Substance: SODIUM CHLORIDE
     Indication: Lumbar radiculopathy
     Dosage: 2 MILLILITER
     Route: 008
  8. SODIUM CHLORIDE [Concomitant]
     Active Substance: SODIUM CHLORIDE
     Dosage: 2 MILLILITER (15 MONTHS AFTER PREVIOUS INJECTION)
     Route: 008

REACTIONS (1)
  - Meningitis aseptic [Recovered/Resolved]
